FAERS Safety Report 24147976 (Version 1)
Quarter: 2024Q3

REPORT INFORMATION
  Report Type: Report from Study
  Country: US (occurrence: US)
  Receive Date: 20240729
  Receipt Date: 20240729
  Transmission Date: 20241016
  Serious: Yes (Other)
  Sender: ABBVIE
  Company Number: US-ABBVIE-5499114

PATIENT
  Sex: Female

DRUGS (2)
  1. HUMIRA [Suspect]
     Active Substance: ADALIMUMAB
     Indication: Crohn^s disease
     Dosage: CITRATE FREE
     Route: 058
     Dates: start: 20180206
  2. HUMIRA [Suspect]
     Active Substance: ADALIMUMAB
     Dosage: CITRATE FREE
     Route: 058
     Dates: start: 20230606

REACTIONS (5)
  - Knee operation [Recovering/Resolving]
  - Anxiety [Unknown]
  - Deafness [Unknown]
  - Arthralgia [Recovering/Resolving]
  - Hip arthroplasty [Unknown]

NARRATIVE: CASE EVENT DATE: 20140101
